FAERS Safety Report 16120863 (Version 2)
Quarter: 2019Q1

REPORT INFORMATION
  Report Type: Spontaneous
  Country: US (occurrence: US)
  Receive Date: 20190327
  Receipt Date: 20190329
  Transmission Date: 20190418
  Serious: Yes (Other)
  Sender: FDA-Public Use
  Company Number: US-JNJFOC-20190328371

PATIENT
  Sex: Male
  Weight: 6.41 kg

DRUGS (1)
  1. INFANTS TYLENOL [Suspect]
     Active Substance: ACETAMINOPHEN
     Indication: TEETHING
     Dosage: FREQUENCY: ONE TIME
     Route: 048
     Dates: start: 20190220

REACTIONS (3)
  - Dyspnoea [Not Recovered/Not Resolved]
  - Product contamination microbial [Unknown]
  - Sinus congestion [Not Recovered/Not Resolved]
